FAERS Safety Report 24173125 (Version 6)
Quarter: 2024Q3

REPORT INFORMATION
  Report Type: Spontaneous
  Country: AR (occurrence: AR)
  Receive Date: 20240805
  Receipt Date: 20240822
  Transmission Date: 20241017
  Serious: No
  Sender: PFIZER
  Company Number: AR-PFIZER INC-202400228301

PATIENT
  Age: 6 Year
  Sex: Male

DRUGS (1)
  1. GENOTROPIN [Suspect]
     Active Substance: SOMATROPIN
     Indication: Growth hormone deficiency
     Dosage: 0.5 MG, 6 TIMES PER WEEK
     Dates: start: 20240705

REACTIONS (3)
  - Wrong technique in device usage process [Recovered/Resolved]
  - Device leakage [Recovered/Resolved]
  - Intentional product misuse [Recovered/Resolved]
